FAERS Safety Report 5118647-6 (Version None)
Quarter: 2006Q3

REPORT INFORMATION
  Report Type: 
  Country: None (occurrence: None)
  Receive Date: 20060927
  Receipt Date: 20060914
  Transmission Date: 20061208
  Serious: Yes (Life-Threatening, Hospitalization)
  Sender: FDA-Public Use
  Company Number: 229228

PATIENT
  Age: 58 Year
  Sex: Female
  Weight: 49 kg

DRUGS (5)
  1. RITUXIMAB OR UNBLINDED (RITUXIMAB) CONC FOR SOLUTION FOR INFUSION [Suspect]
     Indication: RHEUMATOID ARTHRITIS
     Dosage: DAYS 1 + 15, INTRAVENOUS
     Route: 042
     Dates: start: 20060727
  2. FELODIPINE [Concomitant]
  3. ATENOLOL [Concomitant]
  4. DOPAMINE (DOPAMINE HYDROCHLORIDE) [Concomitant]
  5. METHYLPREDNISOLONE [Concomitant]

REACTIONS (7)
  - ACUTE RESPIRATORY DISTRESS SYNDROME [None]
  - BLOOD CREATININE INCREASED [None]
  - BLOOD CULTURE POSITIVE [None]
  - BLOOD UREA INCREASED [None]
  - C-REACTIVE PROTEIN INCREASED [None]
  - LUNG CONSOLIDATION [None]
  - STAPHYLOCOCCAL INFECTION [None]
